FAERS Safety Report 8843408 (Version 1)
Quarter: 2012Q4

REPORT INFORMATION
  Report Type: 
  Country: US (occurrence: US)
  Receive Date: 20121016
  Receipt Date: 20121016
  Transmission Date: 20130627
  Serious: Yes (Disabling)
  Sender: FDA-Public Use
  Company Number: US-ELI_LILLY_AND_COMPANY-US201210002622

PATIENT
  Sex: Male

DRUGS (3)
  1. HUMALOG 25% LISPRO, 75% NPL [Suspect]
     Indication: TYPE 1 DIABETES MELLITUS
     Dosage: 45 u, each morning
  2. HUMALOG 25% LISPRO, 75% NPL [Suspect]
     Dosage: 35 u, each evening
  3. METFORMIN [Concomitant]
     Indication: TYPE 1 DIABETES MELLITUS
     Dosage: UNK, qd

REACTIONS (3)
  - Blindness [Not Recovered/Not Resolved]
  - Drug ineffective [Unknown]
  - Blood glucose increased [Unknown]
